FAERS Safety Report 7978166-6 (Version None)
Quarter: 2011Q4

REPORT INFORMATION
  Report Type: 
  Country: None (occurrence: None)
  Receive Date: 20111214
  Receipt Date: 20111206
  Transmission Date: 20120403
  Serious: Yes (Other)
  Sender: FDA-Public Use
  Company Number: DE-ELI_LILLY_AND_COMPANY-DE201112001276

PATIENT
  Sex: Female

DRUGS (2)
  1. ERGOCALCIFEROL [Concomitant]
  2. FORTEO [Suspect]
     Indication: OSTEOPOROSIS
     Dosage: UNK, QD
     Route: 058
     Dates: start: 20110610

REACTIONS (4)
  - PAIN [None]
  - SPINAL COLUMN STENOSIS [None]
  - OEDEMA PERIPHERAL [None]
  - FALL [None]
